FAERS Safety Report 17263559 (Version 1)
Quarter: 2020Q1

REPORT INFORMATION
  Report Type: Spontaneous
  Country: US (occurrence: US)
  Receive Date: 20200113
  Receipt Date: 20200113
  Transmission Date: 20200409
  Serious: Yes (Other)
  Sender: FDA-Public Use
  Company Number: None

PATIENT
  Age: 53 Year
  Sex: Male
  Weight: 57.6 kg

DRUGS (2)
  1. PSEUDOEPHEDRINE HCL [Concomitant]
     Active Substance: PSEUDOEPHEDRINE HYDROCHLORIDE
  2. AMOXICILLIN AND CLAVULANATE POTASSIUM TABLETS, USP 875MG / 125MG [Suspect]
     Active Substance: AMOXICILLIN\CLAVULANATE POTASSIUM
     Indication: SINUSITIS
     Dosage: ?          QUANTITY:20 TABLET(S);?
     Route: 048
     Dates: start: 20191013, end: 20191021

REACTIONS (5)
  - Chromaturia [None]
  - Fatigue [None]
  - Micturition urgency [None]
  - Product odour abnormal [None]
  - Diarrhoea [None]
